FAERS Safety Report 14395124 (Version 1)
Quarter: 2018Q1

REPORT INFORMATION
  Report Type: Spontaneous
  Country: GB (occurrence: GB)
  Receive Date: 20180116
  Receipt Date: 20180116
  Transmission Date: 20180509
  Serious: Yes (Hospitalization)
  Sender: FDA-Public Use
  Company Number: GB-TEVA-2018-GB-844906

PATIENT
  Age: 54 Year
  Sex: Female
  Weight: 75 kg

DRUGS (11)
  1. CHLORHEXIDINE GLUCONATE. [Concomitant]
     Active Substance: CHLORHEXIDINE GLUCONATE
  2. IRBESARTAN. [Concomitant]
     Active Substance: IRBESARTAN
  3. LACTULOSE. [Concomitant]
     Active Substance: LACTULOSE
  4. COCODAMOL [Concomitant]
     Active Substance: ACETAMINOPHEN\CODEINE PHOSPHATE
  5. TRAMADOL HYDROCHLORIDE. [Concomitant]
     Active Substance: TRAMADOL HYDROCHLORIDE
  6. CAPECITABINE. [Suspect]
     Active Substance: CAPECITABINE
     Indication: COLON CANCER
     Route: 048
  7. ANTIEMETICS [Concomitant]
     Active Substance: UNSPECIFIED INGREDIENT
  8. SANDO-K [Concomitant]
     Active Substance: POTASSIUM BICARBONATE\POTASSIUM CHLORIDE
  9. DEXAMETHASONE. [Concomitant]
     Active Substance: DEXAMETHASONE
  10. BENDROFLUMETHIAZIDE [Concomitant]
     Active Substance: BENDROFLUMETHIAZIDE
  11. OXALIPLATIN. [Suspect]
     Active Substance: OXALIPLATIN
     Indication: COLON CANCER

REACTIONS (2)
  - Acute coronary syndrome [Not Recovered/Not Resolved]
  - Cardiac ventricular thrombosis [Not Recovered/Not Resolved]

NARRATIVE: CASE EVENT DATE: 20171128
